FAERS Safety Report 24880150 (Version 2)
Quarter: 2025Q1

REPORT INFORMATION
  Report Type: Spontaneous
  Country: US (occurrence: US)
  Receive Date: 20250123
  Receipt Date: 20250217
  Transmission Date: 20250409
  Serious: No
  Sender: LUNDBECK
  Company Number: US-LUNDBECK-DKLU4008745

PATIENT
  Age: 9 Month
  Sex: Male
  Weight: 7.9832 kg

DRUGS (2)
  1. SABRIL [Suspect]
     Active Substance: VIGABATRIN
     Indication: Illness
     Dosage: 250 MILLIGRAM
     Route: 048
     Dates: start: 20240921
  2. TAURINE [Concomitant]
     Active Substance: TAURINE
     Indication: Product used for unknown indication

REACTIONS (3)
  - Initial insomnia [Recovered/Resolved]
  - Irritability [Recovered/Resolved]
  - Ocular hyperaemia [Recovered/Resolved]
